FAERS Safety Report 7598035-3 (Version None)
Quarter: 2011Q3

REPORT INFORMATION
  Report Type: 
  Country: None (occurrence: None)
  Receive Date: 20110708
  Receipt Date: 20110701
  Transmission Date: 20111222
  Serious: Yes (Other)
  Sender: FDA-Public Use
  Company Number: GB-PFIZER INC-2011148830

PATIENT
  Age: 4 Year
  Sex: Male

DRUGS (1)
  1. BENEFIX [Suspect]

REACTIONS (1)
  - FACTOR IX INHIBITION [None]
